FAERS Safety Report 7986836-9 (Version None)
Quarter: 2011Q4

REPORT INFORMATION
  Report Type: 
  Country: None (occurrence: None)
  Receive Date: 20111216
  Receipt Date: 20111011
  Transmission Date: 20120403
  Serious: No
  Sender: FDA-Public Use
  Company Number: US-BRISTOL-MYERS SQUIBB COMPANY-16027484

PATIENT
  Age: 9 Year
  Sex: Male

DRUGS (5)
  1. RITALIN [Concomitant]
  2. ZOLOFT [Concomitant]
  3. VASOTEC [Concomitant]
  4. ABILIFY [Suspect]
  5. MELATONIN [Concomitant]

REACTIONS (1)
  - HYPOPROLACTINAEMIA [None]
